FAERS Safety Report 8011653-3 (Version None)
Quarter: 2011Q4

REPORT INFORMATION
  Report Type: 
  Country: None (occurrence: None)
  Receive Date: 20111228
  Receipt Date: 20111221
  Transmission Date: 20120403
  Serious: Yes (Hospitalization)
  Sender: FDA-Public Use
  Company Number: US-ELI_LILLY_AND_COMPANY-US201112006568

PATIENT
  Sex: Male

DRUGS (3)
  1. HUMULIN 70/30 [Suspect]
     Dosage: 20 U, BID
     Dates: start: 20090701
  2. HUMULIN 70/30 [Suspect]
     Dosage: 20 U, BID
     Dates: start: 20090701
  3. HUMULIN 70/30 [Suspect]
     Dosage: 20 U, BID
     Dates: start: 20090701

REACTIONS (5)
  - HEART RATE IRREGULAR [None]
  - BLOOD GLUCOSE INCREASED [None]
  - INTESTINAL OBSTRUCTION [None]
  - DRUG INEFFECTIVE [None]
  - ATRIAL FIBRILLATION [None]
